FAERS Safety Report 24010261 (Version 2)
Quarter: 2024Q2

REPORT INFORMATION
  Report Type: Spontaneous
  Country: US (occurrence: US)
  Receive Date: 20240625
  Receipt Date: 20240626
  Transmission Date: 20240716
  Serious: Yes (Life-Threatening, Hospitalization)
  Sender: FDA-Public Use
  Company Number: US-MLMSERVICE-20240613-PI099952-00312-1

PATIENT
  Age: 30 Year
  Sex: Male

DRUGS (2)
  1. TESTOSTERONE CYPIONATE [Suspect]
     Active Substance: TESTOSTERONE CYPIONATE
     Dosage: UNK
  2. TRENBOLONE [Suspect]
     Active Substance: TRENBOLONE
     Indication: Body modification
     Dosage: UNK

REACTIONS (10)
  - Graft haemorrhage [Recovered/Resolved]
  - Hepatorenal syndrome [Recovering/Resolving]
  - Renal tubular necrosis [Recovering/Resolving]
  - Haemangioma [Recovering/Resolving]
  - Brain oedema [Recovering/Resolving]
  - Acute hepatic failure [Recovering/Resolving]
  - Hepatic necrosis [Recovering/Resolving]
  - Acute kidney injury [Recovering/Resolving]
  - Nephropathy [Recovering/Resolving]
  - Thrombocytopenia [Recovering/Resolving]
